FAERS Safety Report 6259747-7 (Version None)
Quarter: 2009Q3

REPORT INFORMATION
  Report Type: 
  Country: None (occurrence: None)
  Receive Date: 20090708
  Receipt Date: 20090624
  Transmission Date: 20100115
  Serious: Yes (Death, Other)
  Sender: FDA-Public Use
  Company Number: US-PFIZER INC-2009236117

PATIENT
  Sex: Male
  Weight: 113.38 kg

DRUGS (6)
  1. MORPHINE SULFATE [Suspect]
     Indication: DRUG USE FOR UNKNOWN INDICATION
  2. OXYCONTIN [Suspect]
     Indication: PAIN
  3. OXYCODONE HYDROCHLORIDE [Suspect]
     Indication: PAIN
  4. XANAX [Suspect]
     Indication: DRUG USE FOR UNKNOWN INDICATION
  5. METHADONE HYDROCHLORIDE [Suspect]
     Indication: DRUG USE FOR UNKNOWN INDICATION
  6. ROXICODONE [Suspect]
     Indication: DRUG USE FOR UNKNOWN INDICATION

REACTIONS (5)
  - CARDIAC ARREST [None]
  - DRUG ABUSE [None]
  - DRUG DEPENDENCE [None]
  - MULTIPLE DRUG OVERDOSE ACCIDENTAL [None]
  - RESPIRATORY DEPRESSION [None]
